FAERS Safety Report 21395790 (Version 1)
Quarter: 2022Q3

REPORT INFORMATION
  Report Type: Spontaneous
  Country: BR (occurrence: BR)
  Receive Date: 20220930
  Receipt Date: 20220930
  Transmission Date: 20221026
  Serious: Yes (Hospitalization, Other)
  Sender: FDA-Public Use
  Company Number: BR-PFIZER INC-PV202200072571

PATIENT
  Age: 78 Year
  Sex: Female
  Weight: 54 kg

DRUGS (5)
  1. IBRANCE [Suspect]
     Active Substance: PALBOCICLIB
     Indication: Breast cancer
     Dosage: 1 DF, DAILY FOR 21 DAYS AND BREAK 7 DAYS
     Dates: start: 20210601
  2. OMEPRAZOLE [Concomitant]
     Active Substance: OMEPRAZOLE
     Dosage: 25 MG, DAILY
  3. ACETAMINOPHEN [Concomitant]
     Active Substance: ACETAMINOPHEN
     Dosage: 500 MG, DAILY
  4. DEXAMETHASONE [Concomitant]
     Active Substance: DEXAMETHASONE
     Dosage: 4 MG, DAILY
  5. FLAVONID [Concomitant]
     Dosage: 450 MG, 2X/DAY

REACTIONS (9)
  - Thrombosis [Unknown]
  - Vocal cord paralysis [Unknown]
  - Peripheral swelling [Unknown]
  - Skin discolouration [Unknown]
  - Lymphadenopathy [Unknown]
  - Asthenia [Unknown]
  - Constipation [Unknown]
  - Mood swings [Unknown]
  - Weight decreased [Unknown]

NARRATIVE: CASE EVENT DATE: 20220501
